FAERS Safety Report 8159284-9 (Version None)
Quarter: 2012Q1

REPORT INFORMATION
  Report Type: 
  Country: None (occurrence: None)
  Receive Date: 20120217
  Receipt Date: 20120130
  Transmission Date: 20120608
  Serious: Yes (Hospitalization)
  Sender: FDA-Public Use
  Company Number: NL-007608

PATIENT
  Age: 61 Year
  Sex: Male

DRUGS (1)
  1. FIRMAGON [Suspect]
     Indication: PROSTATE CANCER
     Dosage: (80 MG QD SUBCUTANEOUS)
     Route: 058
     Dates: start: 20111012, end: 20111215

REACTIONS (3)
  - RASH [None]
  - PYREXIA [None]
  - OEDEMA PERIPHERAL [None]
